FAERS Safety Report 14703029 (Version 3)
Quarter: 2018Q2

REPORT INFORMATION
  Report Type: Report from Study
  Country: None (occurrence: US)
  Receive Date: 20180402
  Receipt Date: 20180412
  Transmission Date: 20180711
  Serious: Yes (Hospitalization)
  Sender: FDA-Public Use
  Company Number: US-ABBVIE-18K-163-2304524-00

PATIENT
  Age: 62 Year
  Sex: Male
  Weight: 107.14 kg

DRUGS (7)
  1. VITAMIN D3 [Concomitant]
     Active Substance: CHOLECALCIFEROL
     Indication: VITAMIN SUPPLEMENTATION
  2. CIALIS [Concomitant]
     Active Substance: TADALAFIL
     Indication: PRODUCT USED FOR UNKNOWN INDICATION
  3. PRAVASTATIN. [Concomitant]
     Active Substance: PRAVASTATIN
     Indication: BLOOD CHOLESTEROL INCREASED
  4. NAPROXEN. [Concomitant]
     Active Substance: NAPROXEN
     Indication: ARTHRALGIA
  5. COCAINE HYDROCHLORIDE. [Concomitant]
     Active Substance: COCAINE HYDROCHLORIDE
     Indication: PRODUCT USED FOR UNKNOWN INDICATION
  6. PANTOPRAZOLE [Concomitant]
     Active Substance: PANTOPRAZOLE
     Indication: HYPERCHLORHYDRIA
  7. HUMIRA [Suspect]
     Active Substance: ADALIMUMAB
     Indication: RHEUMATOID ARTHRITIS
     Route: 058
     Dates: start: 201707, end: 20180321

REACTIONS (11)
  - Staphylococcal infection [Recovering/Resolving]
  - Incision site haemorrhage [Recovering/Resolving]
  - Wound [Not Recovered/Not Resolved]
  - Wound haemorrhage [Recovered/Resolved]
  - Haemorrhagic diathesis [Not Recovered/Not Resolved]
  - Renal pain [Recovered/Resolved]
  - Peripheral swelling [Recovering/Resolving]
  - Arthropod bite [Recovered/Resolved]
  - Wound complication [Recovered/Resolved]
  - Purulent discharge [Recovered/Resolved]
  - Acne pustular [Unknown]

NARRATIVE: CASE EVENT DATE: 2017
